FAERS Safety Report 26045123 (Version 1)
Quarter: 2025Q4

REPORT INFORMATION
  Report Type: Report from Study
  Country: US (occurrence: None)
  Receive Date: 20251114
  Receipt Date: 20251114
  Transmission Date: 20260117
  Serious: Yes (Other)
  Sender: UCB
  Company Number: US-UCBSA-2023022475

PATIENT
  Age: 5 Year
  Weight: 22.28 kg

DRUGS (3)
  1. FENFLURAMINE [Suspect]
     Active Substance: FENFLURAMINE
     Indication: Product used for unknown indication
     Dosage: 0.45 MILLIGRAM/KILOGRAM, ONCE DAILY (QD)
  2. FENFLURAMINE [Suspect]
     Active Substance: FENFLURAMINE
     Dosage: 3.7 MILLILITER, 2X/DAY (BID)
  3. FENFLURAMINE [Suspect]
     Active Substance: FENFLURAMINE
     Dosage: 22 MG/DAY

REACTIONS (3)
  - Tricuspid valve incompetence [Unknown]
  - Left ventricular hypertrophy [Unknown]
  - Echocardiogram abnormal [Not Recovered/Not Resolved]
